FAERS Safety Report 6879813-2 (Version None)
Quarter: 2010Q3

REPORT INFORMATION
  Report Type: 
  Country: None (occurrence: None)
  Receive Date: 20100728
  Receipt Date: 20100715
  Transmission Date: 20110219
  Serious: Yes (Life-Threatening, Hospitalization)
  Sender: FDA-Public Use
  Company Number: MX-BRISTOL-MYERS SQUIBB COMPANY-15186307

PATIENT
  Age: 75 Year
  Sex: Male

DRUGS (3)
  1. METFORMIN HCL [Suspect]
     Indication: TYPE 2 DIABETES MELLITUS
  2. CHLORPROPAMIDE [Concomitant]
     Indication: TYPE 2 DIABETES MELLITUS
  3. TELMISARTAN [Concomitant]
     Indication: HYPERTENSION

REACTIONS (7)
  - ANAEMIA [None]
  - AZOTAEMIA [None]
  - DEHYDRATION [None]
  - DIARRHOEA [None]
  - HYPERKALAEMIA [None]
  - LACTIC ACIDOSIS [None]
  - OLIGURIA [None]
